FAERS Safety Report 20482425 (Version 2)
Quarter: 2022Q1

REPORT INFORMATION
  Report Type: Spontaneous
  Country: RU (occurrence: RU)
  Receive Date: 20220217
  Receipt Date: 20220311
  Transmission Date: 20220423
  Serious: Yes (Death)
  Sender: FDA-Public Use
  Company Number: RU-ABBVIE-22K-251-4281633-00

PATIENT
  Age: 67 Year
  Sex: Female

DRUGS (1)
  1. RINVOQ [Suspect]
     Active Substance: UPADACITINIB
     Indication: Rheumatoid arthritis
     Route: 048
     Dates: start: 202008, end: 20211212

REACTIONS (8)
  - Hepatic failure [Fatal]
  - Hepatitis B [Fatal]
  - Proteinuria [Unknown]
  - Blood bilirubin increased [Unknown]
  - Urobilinogen urine increased [Not Recovered/Not Resolved]
  - Leukocyturia [Unknown]
  - Haematuria [Unknown]
  - Cylindruria [Unknown]

NARRATIVE: CASE EVENT DATE: 20211216
